FAERS Safety Report 7386178-9 (Version None)
Quarter: 2011Q1

REPORT INFORMATION
  Report Type: 
  Country: None (occurrence: None)
  Receive Date: 20110329
  Receipt Date: 20110329
  Transmission Date: 20110831
  Serious: Yes (Hospitalization, Other)
  Sender: FDA-Public Use
  Company Number: None

PATIENT
  Age: 11 Month
  Sex: Male
  Weight: 9.9791 kg

DRUGS (1)
  1. OMEPRAZOLE [Suspect]
     Indication: GASTROOESOPHAGEAL REFLUX DISEASE
     Dosage: 1ML 2 TIMES DAILY PO
     Route: 048
     Dates: start: 20110117, end: 20110321

REACTIONS (4)
  - DIARRHOEA [None]
  - PAIN IN EXTREMITY [None]
  - MUSCLE SPASMS [None]
  - GASTROENTERITIS VIRAL [None]
